FAERS Safety Report 10528271 (Version 1)
Quarter: 2014Q4

REPORT INFORMATION
  Report Type: Spontaneous
  Country: US (occurrence: None)
  Receive Date: 20141017
  Receipt Date: 20141017
  Transmission Date: 20150528
  Serious: Yes (Other)
  Sender: FDA-Public Use
  Company Number: None

PATIENT
  Age: 49 Year
  Sex: Male
  Weight: 102.51 kg

DRUGS (1)
  1. METHIMAZOLE 10 MG PAR [Suspect]
     Active Substance: METHIMAZOLE
     Indication: BASEDOW^S DISEASE
     Dosage: 1 10 MG TAB ONCE DAILY TAKEN BY MOUTH
     Route: 048
     Dates: start: 20120801, end: 20140201

REACTIONS (3)
  - Fatigue [None]
  - Adrenal disorder [None]
  - Blood cortisol decreased [None]

NARRATIVE: CASE EVENT DATE: 20141010
